FAERS Safety Report 17025562 (Version 1)
Quarter: 2019Q4

REPORT INFORMATION
  Report Type: Spontaneous
  Country: PT (occurrence: PT)
  Receive Date: 20191113
  Receipt Date: 20191113
  Transmission Date: 20200122
  Serious: Yes (Death, Hospitalization, Other)
  Sender: FDA-Public Use
  Company Number: PT-SA-2019SA311263

PATIENT
  Age: 73 Year
  Sex: Male

DRUGS (6)
  1. BISOPROLOL [Concomitant]
     Active Substance: BISOPROLOL
     Indication: TACHYCARDIA
     Dosage: UNK
     Route: 065
  2. JEVTANA [Suspect]
     Active Substance: CABAZITAXEL
     Indication: PROSTATE CANCER METASTATIC
     Dosage: 40 MG, Q3W
     Route: 065
  3. PREGABALIN. [Concomitant]
     Active Substance: PREGABALIN
     Dosage: 150 MG, QD
     Route: 065
  4. HYDROMORPHONE [Concomitant]
     Active Substance: HYDROMORPHONE
     Dosage: UNK
     Route: 065
  5. JEVTANA [Suspect]
     Active Substance: CABAZITAXEL
     Dosage: 30 MG, Q3W
     Route: 065
     Dates: start: 20191014, end: 20191014
  6. BROMAZEPAM [Concomitant]
     Active Substance: BROMAZEPAM
     Dosage: UNK
     Route: 065

REACTIONS (9)
  - Neutropenia [Fatal]
  - Anaemia [Fatal]
  - Hypoacusis [Fatal]
  - Weight decreased [Fatal]
  - Decreased appetite [Fatal]
  - Pyrexia [Fatal]
  - Tachycardia [Fatal]
  - Drug ineffective [Fatal]
  - Alopecia [Fatal]

NARRATIVE: CASE EVENT DATE: 20191014
